FAERS Safety Report 5216436-5 (Version None)
Quarter: 2007Q1

REPORT INFORMATION
  Report Type: 
  Country: None (occurrence: None)
  Receive Date: 20061127
  Receipt Date: 20061016
  Transmission Date: 20070707
  Serious: Yes (Other)
  Sender: FDA-Public Use
  Company Number: US-JNJFOC-20061003645

PATIENT
  Age: 16 Year
  Sex: Female
  Weight: 58.9676 kg

DRUGS (2)
  1. ORTHO TRI-CYCLEAN LO (NORGESTIMATE/ETHINYL ESTRADIOL) TABLETS [Suspect]
     Indication: ACNE
     Dosage: 1 DOSE(S), 1 IN 1 DAY
     Dates: start: 20040101
  2. ORTHO TRI-CYCLEAN LO (NORGESTIMATE/ETHINYL ESTRADIOL) TABLETS [Suspect]
     Indication: CONTRACEPTION
     Dosage: 1 DOSE(S), 1 IN 1 DAY
     Dates: start: 20040101

REACTIONS (1)
  - WEIGHT INCREASED [None]
